FAERS Safety Report 21517279 (Version 1)
Quarter: 2022Q4

REPORT INFORMATION
  Report Type: Report from Study
  Country: CO (occurrence: CO)
  Receive Date: 20221028
  Receipt Date: 20221028
  Transmission Date: 20230112
  Serious: Yes (Death, Other)
  Sender: FDA-Public Use
  Company Number: CO-TAKEDA-CO202023377

PATIENT
  Age: 46 Year
  Sex: Male
  Weight: 68 kg

DRUGS (6)
  1. ICATIBANT [Suspect]
     Active Substance: ICATIBANT ACETATE
     Indication: Hereditary angioedema
     Dosage: 30 MILLIGRAM
     Route: 065
     Dates: start: 20150206
  2. ICATIBANT [Suspect]
     Active Substance: ICATIBANT ACETATE
     Indication: Hereditary angioedema
     Dosage: 30 MILLIGRAM
     Route: 065
     Dates: start: 20150206
  3. ICATIBANT [Suspect]
     Active Substance: ICATIBANT ACETATE
     Dosage: 30 MILLIGRAM
     Route: 065
     Dates: start: 20200715
  4. ICATIBANT [Suspect]
     Active Substance: ICATIBANT ACETATE
     Dosage: 30 MILLIGRAM
     Route: 065
     Dates: start: 20200715
  5. ICATIBANT [Suspect]
     Active Substance: ICATIBANT ACETATE
     Dosage: UNK UNK, TID
     Route: 058
     Dates: start: 20150206
  6. ICATIBANT [Suspect]
     Active Substance: ICATIBANT ACETATE
     Dosage: UNK UNK, TID
     Route: 058
     Dates: start: 20150206

REACTIONS (1)
  - Death [Fatal]

NARRATIVE: CASE EVENT DATE: 20221025
